FAERS Safety Report 9542324 (Version 1)
Quarter: 2013Q3

REPORT INFORMATION
  Report Type: Spontaneous
  Country: US (occurrence: None)
  Receive Date: 20130919
  Receipt Date: 20130919
  Transmission Date: 20140515
  Serious: Yes (Other)
  Sender: FDA-Public Use
  Company Number: None

PATIENT
  Age: 23 Year
  Sex: Female
  Weight: 71.22 kg

DRUGS (1)
  1. VYVANSE [Suspect]
     Indication: ATTENTION DEFICIT/HYPERACTIVITY DISORDER
     Dates: start: 20130916, end: 20130918

REACTIONS (10)
  - Sensory disturbance [None]
  - Insomnia [None]
  - Condition aggravated [None]
  - Decreased appetite [None]
  - Paraesthesia [None]
  - Palpitations [None]
  - Fatigue [None]
  - Hypophagia [None]
  - Anxiety [None]
  - Euphoric mood [None]
